FAERS Safety Report 9902934 (Version 2)
Quarter: 2014Q1

REPORT INFORMATION
  Report Type: Spontaneous
  Country: TR (occurrence: TR)
  Receive Date: 20140217
  Receipt Date: 20140225
  Transmission Date: 20141002
  Serious: Yes (Hospitalization)
  Sender: FDA-Public Use
  Company Number: PHHY2014TR016344

PATIENT
  Age: 53 Year
  Sex: Female

DRUGS (5)
  1. TEGRETOL [Suspect]
     Indication: TRIGEMINAL NEURALGIA
     Dosage: 200 MG, UNK
     Dates: end: 20140205
  2. COVERSYL [Concomitant]
     Dosage: 5 MG, UNK
  3. LIORESAL [Concomitant]
     Dosage: 10 MG, UNK
  4. ATIVAN [Concomitant]
     Dosage: 1 MG, UNK
  5. SUPRAFEN [Concomitant]
     Dosage: 400 MG, UNK

REACTIONS (10)
  - Hepatotoxicity [Unknown]
  - Pruritus [Recovered/Resolved]
  - Nausea [Recovered/Resolved]
  - Vomiting [Recovered/Resolved]
  - Alanine aminotransferase increased [Recovered/Resolved]
  - Aspartate aminotransferase increased [Recovered/Resolved]
  - Gamma-glutamyltransferase increased [Recovered/Resolved]
  - C-reactive protein increased [Unknown]
  - Erythema [Recovered/Resolved]
  - Urticaria [Recovered/Resolved]
